FAERS Safety Report 8681465 (Version 2)
Quarter: 2012Q4

REPORT INFORMATION
  Report Type: 
  Country: US (occurrence: US)
  Receive Date: 20120725
  Receipt Date: 20120904
  Transmission Date: 20130627
  Serious: Yes (Death, Other)
  Sender: FDA-Public Use
  Company Number: US-JNJFOC-20120710803

PATIENT
  Age: 70 Year
  Sex: Female

DRUGS (5)
  1. IBUPROFEN [Suspect]
     Indication: PRODUCT USED FOR UNKNOWN INDICATION
     Dosage: at an unspecified dose
     Route: 065
  2. GABAPENTIN [Suspect]
     Indication: PRODUCT USED FOR UNKNOWN INDICATION
     Dosage: at an unspecified frequency
     Route: 065
  3. NORTRIPTYLINE [Suspect]
     Indication: PRODUCT USED FOR UNKNOWN INDICATION
     Dosage: at an unspecified dose
     Route: 065
  4. HYDROCODONE [Suspect]
     Indication: PRODUCT USED FOR UNKNOWN INDICATION
     Dosage: at an unspecified dose
     Route: 065
  5. LYRICA [Suspect]
     Indication: HERPES ZOSTER
     Route: 065

REACTIONS (3)
  - Completed suicide [Fatal]
  - Suicidal ideation [Fatal]
  - Asphyxia [None]
